FAERS Safety Report 11774523 (Version 1)
Quarter: 2015Q4

REPORT INFORMATION
  Report Type: Spontaneous
  Country: US (occurrence: US)
  Receive Date: 20151124
  Receipt Date: 20151124
  Transmission Date: 20160304
  Serious: Yes (Hospitalization, Other)
  Sender: FDA-Public Use
  Company Number: US-MALLINCKRODT-T201505263

PATIENT
  Age: 47 Year
  Sex: Female

DRUGS (9)
  1. FENTANYL. [Concomitant]
     Active Substance: FENTANYL
     Dosage: 25 MCG PATCH
  2. BACLOFEN. [Suspect]
     Active Substance: BACLOFEN
     Dosage: 3500 MCG/ML; UNK DOSE (COMPOUNDED)
     Route: 037
     Dates: start: 20141023
  3. OXYCODONE [Concomitant]
     Active Substance: OXYCODONE
     Dosage: 10 MG
  4. GABLOFEN [Suspect]
     Active Substance: BACLOFEN
     Indication: MUSCLE SPASTICITY
     Dosage: 150 MCG/DAY
     Route: 037
     Dates: start: 20140813, end: 20140911
  5. MORPHINE [Suspect]
     Active Substance: MORPHINE
     Indication: PRODUCT USED FOR UNKNOWN INDICATION
     Dosage: 12MG/ML, 3 MG/DAY
     Route: 037
     Dates: start: 20141016, end: 20141023
  6. AMBIEN [Concomitant]
     Active Substance: ZOLPIDEM TARTRATE
     Dosage: UNK
  7. VALIUM [Concomitant]
     Active Substance: DIAZEPAM
     Dosage: UNK
  8. BACLOFEN. [Suspect]
     Active Substance: BACLOFEN
     Dosage: 2000 MCG/ML; 500 MCG/DAY (COMPOUNDED)
     Route: 037
     Dates: start: 20141016, end: 20141023
  9. BACLOFEN. [Suspect]
     Active Substance: BACLOFEN
     Indication: MUSCLE SPASTICITY
     Dosage: 1000 MCG/ML; 350 MCG/DAY (COMPOUNDED)
     Route: 037
     Dates: start: 20140911, end: 20141016

REACTIONS (8)
  - Wound infection pseudomonas [Unknown]
  - Pain [Recovered/Resolved]
  - Dysgeusia [Recovered/Resolved]
  - Hypertension [Recovered/Resolved]
  - Salivary hypersecretion [Recovered/Resolved]
  - Weight decreased [Recovered/Resolved]
  - Paraesthesia [Recovered/Resolved]
  - Postoperative abscess [Unknown]

NARRATIVE: CASE EVENT DATE: 2014
